FAERS Safety Report 12124544 (Version 1)
Quarter: 2016Q1

REPORT INFORMATION
  Report Type: Spontaneous
  Country: US (occurrence: None)
  Receive Date: 20160226
  Receipt Date: 20160226
  Transmission Date: 20160526
  Serious: No
  Sender: FDA-Public Use
  Company Number: None

PATIENT
  Sex: Female

DRUGS (1)
  1. TEARS NATURALE FREE [Suspect]
     Active Substance: DEXTRAN 70\HYPROMELLOSE 2910 (4000 MPA.S)
     Dates: start: 20160219, end: 20160220

REACTIONS (9)
  - Injury [None]
  - Drug administration error [None]
  - Product quality issue [None]
  - Ocular hyperaemia [None]
  - Burning sensation [None]
  - Eye pain [None]
  - Drug ineffective [None]
  - Eye irritation [None]
  - Eye infection [None]

NARRATIVE: CASE EVENT DATE: 20160220
